FAERS Safety Report 9736227 (Version 1)
Quarter: 2013Q4

REPORT INFORMATION
  Report Type: Spontaneous
  Country: US (occurrence: US)
  Receive Date: 20131206
  Receipt Date: 20131206
  Transmission Date: 20140711
  Serious: Yes (Death)
  Sender: FDA-Public Use
  Company Number: US-ROCHE-1312802

PATIENT
  Sex: Male

DRUGS (2)
  1. XELODA [Suspect]
     Indication: PRODUCT USED FOR UNKNOWN INDICATION
     Dosage: 3 TABLETS BY MOUTH TWICE DAILY
     Route: 048
  2. METOPROLOL TARTRATE [Concomitant]

REACTIONS (1)
  - Death [Fatal]
